FAERS Safety Report 9429285 (Version 2)
Quarter: 2013Q4

REPORT INFORMATION
  Report Type: Spontaneous
  Country: US (occurrence: US)
  Receive Date: 20130730
  Receipt Date: 20131016
  Transmission Date: 20140711
  Serious: Yes (Other)
  Sender: FDA-Public Use
  Company Number: US-FRI-1000047301

PATIENT
  Age: 62 Year
  Sex: Female

DRUGS (4)
  1. LINZESS [Suspect]
     Indication: IRRITABLE BOWEL SYNDROME
     Dosage: 290 MCG
     Route: 048
     Dates: start: 20130710, end: 201308
  2. LYRICA [Concomitant]
     Indication: VULVOVAGINAL PAIN
  3. KLONOPIN [Concomitant]
     Indication: VULVOVAGINAL PAIN
  4. PAXIL [Concomitant]

REACTIONS (7)
  - Suicidal ideation [Recovered/Resolved]
  - Abdominal distension [Recovered/Resolved]
  - Diarrhoea [Unknown]
  - Flatulence [Unknown]
  - Proctalgia [Unknown]
  - Pain [Unknown]
  - Haemorrhoidal haemorrhage [Recovered/Resolved]
